FAERS Safety Report 5466653-4 (Version None)
Quarter: 2007Q3

REPORT INFORMATION
  Report Type: 
  Country: None (occurrence: None)
  Receive Date: 20070924
  Receipt Date: 20070924
  Transmission Date: 20080115
  Serious: No
  Sender: FDA-Public Use
  Company Number: None

PATIENT
  Age: 45 Year
  Sex: Female

DRUGS (9)
  1. OXAPROZIN [Suspect]
     Dosage: 600 MG TABS
     Dates: start: 20050912, end: 20051012
  2. YASMIN [Concomitant]
  3. SEASONALE (ETHINYL ESTRADIOL -LEVONORGESTREL) [Concomitant]
  4. ALBUTEROL [Concomitant]
  5. FLOVENT [Concomitant]
  6. SINGULAIR [Concomitant]
  7. OMEGA-6 FISH OIL [Suspect]
  8. CALCIUM [Concomitant]
  9. CHROMIUM [Concomitant]

REACTIONS (9)
  - BIOPSY LIVER ABNORMAL [None]
  - HEPATIC NECROSIS [None]
  - HEPATITIS [None]
  - HEPATOMEGALY [None]
  - LIVER INJURY [None]
  - NIGHT SWEATS [None]
  - RASH MACULO-PAPULAR [None]
  - SPLENOMEGALY [None]
  - TENDERNESS [None]
